FAERS Safety Report 10203324 (Version 2)
Quarter: 2014Q2

REPORT INFORMATION
  Report Type: Spontaneous
  Country: AU (occurrence: AU)
  Receive Date: 20140529
  Receipt Date: 20140529
  Transmission Date: 20141212
  Serious: Yes (Hospitalization, Other)
  Sender: FDA-Public Use
  Company Number: PHHY2014AU056557

PATIENT
  Age: 76 Year
  Sex: Female
  Weight: 79 kg

DRUGS (1)
  1. ACLASTA [Suspect]
     Dosage: ANNUAL
     Route: 042
     Dates: start: 20121113, end: 20121113

REACTIONS (13)
  - Infusion site swelling [Recovered/Resolved]
  - Deafness [Unknown]
  - Balance disorder [Unknown]
  - Ear discomfort [Unknown]
  - Head discomfort [Unknown]
  - Tinnitus [Unknown]
  - Pain [Unknown]
  - Dizziness [Unknown]
  - Nausea [Unknown]
  - Syncope [Unknown]
  - Paraesthesia [Unknown]
  - Joint swelling [Unknown]
  - Cough [Unknown]
